FAERS Safety Report 9729709 (Version 1)
Quarter: 2013Q4

REPORT INFORMATION
  Report Type: Spontaneous
  Country: US (occurrence: US)
  Receive Date: 20131204
  Receipt Date: 20131204
  Transmission Date: 20140711
  Serious: No
  Sender: FDA-Public Use
  Company Number: US-GILEAD-2009-0021758

PATIENT
  Age: 11 Year
  Sex: Male
  Weight: 40.82 kg

DRUGS (11)
  1. LETAIRIS [Suspect]
     Indication: PULMONARY ARTERIAL HYPERTENSION
     Route: 048
     Dates: start: 20090114
  2. REVATIO [Concomitant]
  3. DIGOXIN [Concomitant]
  4. DILTIAZEM [Concomitant]
  5. VENTAVIS [Concomitant]
     Indication: PULMONARY ARTERIAL HYPERTENSION
  6. ALBUTEROL [Concomitant]
  7. COUMADIN [Concomitant]
  8. OXYGEN [Concomitant]
  9. CETIRIZINE HCL [Concomitant]
  10. CLARITIN [Concomitant]
  11. FLOVENT [Concomitant]

REACTIONS (1)
  - Rash [Unknown]
